FAERS Safety Report 15308054 (Version 2)
Quarter: 2018Q3

REPORT INFORMATION
  Report Type: Spontaneous
  Country: BR (occurrence: BR)
  Receive Date: 20180822
  Receipt Date: 20180917
  Transmission Date: 20181010
  Serious: Yes (Death, Hospitalization, Other)
  Sender: FDA-Public Use
  Company Number: BR-PFIZER INC-2018335515

PATIENT
  Age: 58 Year
  Sex: Male
  Weight: 71 kg

DRUGS (4)
  1. LIPITOR [Concomitant]
     Active Substance: ATORVASTATIN CALCIUM
     Indication: HYPERCHOLESTEROLAEMIA
     Dosage: UNK
  2. AAS [Concomitant]
     Active Substance: ASPIRIN
     Indication: HYPERCHOLESTEROLAEMIA
     Dosage: UNK
  3. SUTENT [Suspect]
     Active Substance: SUNITINIB MALATE
     Dosage: 25MG 1X DAILY + 12.5MG 1X DAILY
     Route: 048
     Dates: start: 20180516, end: 20180613
  4. SUTENT [Suspect]
     Active Substance: SUNITINIB MALATE
     Indication: RENAL CANCER METASTATIC
     Dosage: 25MG 1X DAILY + 12.5MG 1X DAILY
     Route: 048
     Dates: start: 20180516, end: 20180613

REACTIONS (10)
  - Colitis [Unknown]
  - Postoperative wound infection [Unknown]
  - Abscess [Recovering/Resolving]
  - Neutropenia [Unknown]
  - Osteomyelitis [Unknown]
  - Lung infiltration [Unknown]
  - Thrombocytopenia [Unknown]
  - Respiratory failure [Unknown]
  - Dyspnoea [Unknown]
  - Septic shock [Fatal]
